FAERS Safety Report 22147154 (Version 3)
Quarter: 2023Q2

REPORT INFORMATION
  Report Type: Spontaneous
  Country: US (occurrence: US)
  Receive Date: 20230328
  Receipt Date: 20230504
  Transmission Date: 20230722
  Serious: No
  Sender: FDA-Public Use
  Company Number: US-PFIZER INC-PV202300055593

PATIENT
  Age: 79 Year
  Sex: Female

DRUGS (1)
  1. IBRANCE [Suspect]
     Active Substance: PALBOCICLIB
     Dosage: UNK

REACTIONS (6)
  - Hypersomnia [Unknown]
  - Feeling of body temperature change [Unknown]
  - Fatigue [Unknown]
  - Diarrhoea [Unknown]
  - White blood cell count decreased [Unknown]
  - Decreased appetite [Unknown]
